FAERS Safety Report 5684332-5 (Version None)
Quarter: 2008Q1

REPORT INFORMATION
  Report Type: 
  Country: None (occurrence: None)
  Receive Date: 20080328
  Receipt Date: 20080326
  Transmission Date: 20080703
  Serious: Yes (Other)
  Sender: FDA-Public Use
  Company Number: B0495751A

PATIENT
  Age: 84 Year
  Sex: Female

DRUGS (3)
  1. PAXIL [Suspect]
     Indication: DEPRESSIVE SYMPTOM
     Dosage: 20MG PER DAY
     Route: 048
     Dates: start: 20070907, end: 20070910
  2. OMEPRAZOLE [Concomitant]
     Indication: GASTRIC ULCER
     Dosage: 20MG PER DAY
     Route: 048
     Dates: start: 20070907, end: 20071101
  3. VESICARE [Concomitant]
     Route: 048
     Dates: start: 20070907, end: 20070912

REACTIONS (2)
  - DELIRIUM [None]
  - PORIOMANIA [None]
